FAERS Safety Report 7001955-1 (Version None)
Quarter: 2010Q3

REPORT INFORMATION
  Report Type: 
  Country: None (occurrence: None)
  Receive Date: 20100920
  Receipt Date: 20100916
  Transmission Date: 20110219
  Serious: Yes (Other)
  Sender: FDA-Public Use
  Company Number: A0881480A

PATIENT
  Sex: Female

DRUGS (10)
  1. ADVAIR DISKUS 100/50 [Suspect]
     Indication: ASTHMA
     Dosage: 1PUFF PER DAY
     Route: 055
     Dates: start: 19800101
  2. SINGULAIR [Concomitant]
  3. SPIRIVA [Concomitant]
  4. TYLENOL [Concomitant]
  5. ZYRTEC [Concomitant]
  6. ZANTAC [Concomitant]
  7. PRAVASTATIN [Concomitant]
  8. HYDROCHLOROTHIAZIDE [Concomitant]
  9. METFORMIN [Concomitant]
  10. NASONEX [Concomitant]

REACTIONS (4)
  - COAGULOPATHY [None]
  - DRUG ADMINISTRATION ERROR [None]
  - PLASMA VISCOSITY DECREASED [None]
  - SKIN LACERATION [None]
